FAERS Safety Report 8764940 (Version 1)
Quarter: 2012Q4

REPORT INFORMATION
  Report Type: 
  Country: US (occurrence: US)
  Receive Date: 20120902
  Receipt Date: 20120902
  Transmission Date: 20130627
  Serious: Yes (Hospitalization)
  Sender: FDA-Public Use
  Company Number: US-MYLANLABS-2012S1017667

PATIENT
  Age: 63 Year
  Sex: Male
  Weight: 90 kg

DRUGS (18)
  1. ROCURONIUM BROMIDE [Suspect]
     Dosage: 8 mg/kg/min and titrated to achieve a train-of-four score of 2
  2. ROCURONIUM BROMIDE [Suspect]
     Dosage: 2 x 50mg bolus doses during second surgery day 4
  3. MEROPENEM [Concomitant]
     Indication: SEPSIS
     Route: 042
  4. ANIDULAFUNGIN [Concomitant]
     Indication: SEPSIS
     Route: 042
  5. VANCOMYCIN [Concomitant]
     Indication: SEPSIS
     Route: 042
  6. CIPROFLOXACIN [Concomitant]
     Indication: SEPSIS
     Route: 042
  7. DROTRECOGIN ALFA [Concomitant]
     Indication: SEPSIS
     Dosage: 24 microg/kg/hour for 96 hours (continuous infusion)
     Route: 041
  8. SALBUTAMOL [Concomitant]
     Route: 055
  9. ACETYLCYSTEINE [Concomitant]
     Route: 055
  10. PANTOPRAZOLE [Concomitant]
     Route: 042
  11. AMIODARONE [Concomitant]
     Dosage: 150mg
     Route: 040
  12. AMIODARONE [Concomitant]
     Dosage: 750mg
     Route: 041
  13. NOREPINEPHRINE [Concomitant]
     Dosage: Titrated to maintain a mean arterial pressure of } 65mm Hg
     Route: 065
  14. VASOPRESSIN [Concomitant]
     Dosage: 0.03 unit/min
     Route: 041
  15. INSULIN [Concomitant]
     Dosage: Titrated to achieve a blood glucose concentration of 90-130 mg/dL
  16. DESFLURANE [Concomitant]
     Dosage: 2.1 - 3%
     Route: 065
  17. EPINEPHRINE [Concomitant]
     Indication: CARDIAC ARREST
     Route: 065
  18. ATROPINE [Concomitant]
     Indication: CARDIAC ARREST
     Route: 065

REACTIONS (1)
  - Hyperthermia malignant [Recovered/Resolved]
